FAERS Safety Report 16412768 (Version 13)
Quarter: 2024Q3

REPORT INFORMATION
  Report Type: Report from Study
  Country: CA (occurrence: CA)
  Receive Date: 20190611
  Receipt Date: 20240701
  Transmission Date: 20241016
  Serious: Yes (Other)
  Sender: ROCHE
  Company Number: CA-002147023-PHHY2018CA048157

PATIENT
  Age: 42 Year
  Sex: Female

DRUGS (26)
  1. XOLAIR [Suspect]
     Active Substance: OMALIZUMAB
     Indication: Chronic spontaneous urticaria
     Route: 058
     Dates: start: 20180515
  2. XOLAIR [Suspect]
     Active Substance: OMALIZUMAB
     Route: 058
     Dates: start: 20180613
  3. XOLAIR [Suspect]
     Active Substance: OMALIZUMAB
     Route: 058
     Dates: start: 20180808
  4. XOLAIR [Suspect]
     Active Substance: OMALIZUMAB
     Route: 058
     Dates: start: 20180905
  5. XOLAIR [Suspect]
     Active Substance: OMALIZUMAB
     Route: 058
     Dates: start: 20181003
  6. XOLAIR [Suspect]
     Active Substance: OMALIZUMAB
     Route: 058
     Dates: start: 20190425
  7. XOLAIR [Suspect]
     Active Substance: OMALIZUMAB
     Route: 058
     Dates: start: 20190523
  8. XOLAIR [Suspect]
     Active Substance: OMALIZUMAB
     Route: 058
  9. XOLAIR [Suspect]
     Active Substance: OMALIZUMAB
     Dosage: 300 MG, EVERY 4 WEEKS
     Route: 058
     Dates: start: 202208
  10. XOLAIR [Suspect]
     Active Substance: OMALIZUMAB
     Dosage: 300 MG, EVERY 4 WEEKS
     Route: 058
     Dates: start: 20230616
  11. BILASTINE [Concomitant]
     Active Substance: BILASTINE
     Indication: Product used for unknown indication
     Route: 050
     Dates: start: 201803, end: 201804
  12. BILASTINE [Concomitant]
     Active Substance: BILASTINE
     Dosage: 80 MG, QD (WHITE NIGHT)
  13. BILASTINE [Concomitant]
     Active Substance: BILASTINE
  14. BILASTINE [Concomitant]
     Active Substance: BILASTINE
  15. BILASTINE [Concomitant]
     Active Substance: BILASTINE
     Dosage: 80 MG, QD
  16. BILASTINE [Concomitant]
     Active Substance: BILASTINE
     Dosage: 40 MG (2 DOSAGE)
  17. PREDNISONE [Concomitant]
     Active Substance: PREDNISONE
     Indication: Chronic spontaneous urticaria
     Dosage: UNK (MINI-DOSE OF PREDNISONE FOR THE REST OF THE MONTH)
     Route: 065
     Dates: start: 201801, end: 201803
  18. ATARAX [Concomitant]
     Active Substance: HYDROXYZINE HYDROCHLORIDE
     Indication: Product used for unknown indication
     Dosage: UNK
     Dates: end: 20230128
  19. ALESSE 28 [Concomitant]
     Active Substance: ETHINYL ESTRADIOL\LEVONORGESTREL
     Indication: Product used for unknown indication
  20. CYMBALTA [Concomitant]
     Active Substance: DULOXETINE HYDROCHLORIDE
     Indication: Anxiety
  21. CYMBALTA [Concomitant]
     Active Substance: DULOXETINE HYDROCHLORIDE
     Indication: Fibromyalgia
  22. CETIRIZINE HYDROCHLORIDE [Concomitant]
     Active Substance: CETIRIZINE HYDROCHLORIDE
     Indication: Chronic spontaneous urticaria
     Route: 048
     Dates: start: 20180323
  23. SYNTHROID [Concomitant]
     Active Substance: LEVOTHYROXINE SODIUM
     Indication: Product used for unknown indication
  24. EBASTINE [Concomitant]
     Active Substance: EBASTINE
     Indication: Skin lesion
     Dosage: 10 MG, QD
     Dates: end: 20191010
  25. EBASTINE [Concomitant]
     Active Substance: EBASTINE
     Indication: Pruritus
  26. EBASTINE [Concomitant]
     Active Substance: EBASTINE
     Indication: Urticaria

REACTIONS (20)
  - Stress [Not Recovered/Not Resolved]
  - Urticaria [Recovered/Resolved]
  - Rash [Unknown]
  - Heart rate increased [Unknown]
  - Feeling hot [Unknown]
  - Asthenia [Unknown]
  - Acne [Unknown]
  - Discomfort [Unknown]
  - Papule [Unknown]
  - Pain [Unknown]
  - Skin injury [Unknown]
  - Insomnia [Unknown]
  - Skin plaque [Recovering/Resolving]
  - Pigmentation disorder [Unknown]
  - Paraesthesia [Unknown]
  - Chronic spontaneous urticaria [Unknown]
  - Product prescribing error [Unknown]
  - Therapy partial responder [Unknown]
  - Herpes zoster [Recovered/Resolved]
  - Drug ineffective [Unknown]

NARRATIVE: CASE EVENT DATE: 20180613
